FAERS Safety Report 23705837 (Version 1)
Quarter: 2024Q2

REPORT INFORMATION
  Report Type: Report from Study
  Country: US (occurrence: US)
  Receive Date: 20240404
  Receipt Date: 20240404
  Transmission Date: 20240717
  Serious: Yes (Other)
  Sender: FDA-Public Use
  Company Number: US-UCBSA-2024015371

PATIENT

DRUGS (6)
  1. MIDAZOLAM [Suspect]
     Active Substance: MIDAZOLAM
     Indication: Sedative therapy
     Dosage: UNK
     Dates: start: 2021
  2. MIDAZOLAM [Suspect]
     Active Substance: MIDAZOLAM
     Indication: Off label use
  3. REMIMAZOLAM [Suspect]
     Active Substance: REMIMAZOLAM
     Indication: Sedative therapy
     Dosage: 20 MILLIGRAM (TOTAL DOSE)
     Dates: start: 2021
  4. DEXMEDETOMIDINE [Suspect]
     Active Substance: DEXMEDETOMIDINE
     Indication: Sedative therapy
     Dosage: UNK
     Dates: start: 2021
  5. KETAMINE [Suspect]
     Active Substance: KETAMINE
     Indication: Sedative therapy
     Dosage: UNK
     Dates: start: 2021
  6. HYDROMORPHONE [Suspect]
     Active Substance: HYDROMORPHONE
     Indication: Sedative therapy
     Dosage: UNK
     Dates: start: 2021

REACTIONS (5)
  - Hypoxia [Unknown]
  - Systolic hypertension [Unknown]
  - Hypotension [Unknown]
  - Diastolic hypotension [Unknown]
  - Off label use [Unknown]

NARRATIVE: CASE EVENT DATE: 20210101
